FAERS Safety Report 8583790-6 (Version None)
Quarter: 2012Q3

REPORT INFORMATION
  Report Type: 
  Country: None (occurrence: None)
  Receive Date: 20120810
  Receipt Date: 20120730
  Transmission Date: 20120928
  Serious: Yes (Hospitalization, Disabling, Other)
  Sender: FDA-Public Use
  Company Number: US-009507513-1106USA01821

PATIENT

DRUGS (8)
  1. MK-9278 [Concomitant]
     Dosage: UNK UNK, QD
     Dates: start: 19990101
  2. CALCIUM CITRATE [Concomitant]
     Dosage: 600 MG, BID
     Dates: start: 19990101
  3. VITAMIN D [Concomitant]
     Dosage: UNK UNK, QD
     Dates: start: 19990101
  4. OMEGA-3-ACID ETHYL ESTERS [Concomitant]
     Dosage: UNK UNK, QD
     Dates: start: 19990101
  5. ASPIRIN [Concomitant]
  6. OXYCODONE HCL [Concomitant]
  7. FOSAMAX [Suspect]
     Indication: OSTEOPOROSIS
     Dosage: 70 MG, UNK
     Route: 048
     Dates: start: 20011001, end: 20080401
  8. FOSAMAX [Suspect]
     Indication: OSTEOPENIA

REACTIONS (30)
  - HYPERLIPIDAEMIA [None]
  - GLUCOSE TOLERANCE IMPAIRED [None]
  - SWELLING [None]
  - FIBROCYSTIC BREAST DISEASE [None]
  - OSTEOARTHRITIS [None]
  - UPPER RESPIRATORY TRACT INFECTION [None]
  - OSTEOPOROSIS [None]
  - TONSILLAR HYPERTROPHY [None]
  - ACROCHORDON [None]
  - INVESTIGATION ABNORMAL [None]
  - DERMATITIS [None]
  - HYPERKALAEMIA [None]
  - RASH [None]
  - OSTEOPETROSIS [None]
  - ELBOW DEFORMITY [None]
  - GOITRE [None]
  - DRUG INEFFECTIVE [None]
  - MUSCULOSKELETAL PAIN [None]
  - ANXIETY [None]
  - SINUSITIS [None]
  - RENAL CYST [None]
  - CONJUNCTIVITIS [None]
  - CONSTIPATION [None]
  - MENOPAUSE [None]
  - TAENIASIS [None]
  - SKIN PAPILLOMA [None]
  - FEMUR FRACTURE [None]
  - ONYCHOMYCOSIS [None]
  - HAEMORRHOIDS [None]
  - THYROID NEOPLASM [None]
